FAERS Safety Report 21960637 (Version 1)
Quarter: 2023Q1

REPORT INFORMATION
  Report Type: Report from Study
  Country: US (occurrence: US)
  Receive Date: 20230207
  Receipt Date: 20230207
  Transmission Date: 20230418
  Serious: Yes (Hospitalization)
  Sender: FDA-Public Use
  Company Number: US-ABBVIE-4295566

PATIENT
  Sex: Male

DRUGS (1)
  1. IMBRUVICA [Suspect]
     Active Substance: IBRUTINIB
     Indication: Non-Hodgkin^s lymphoma
     Route: 048
     Dates: start: 20220718, end: 202211

REACTIONS (8)
  - Pneumonia [Unknown]
  - Hypervolaemia [Unknown]
  - Influenza [Unknown]
  - Respiratory syncytial virus infection [Unknown]
  - Fistula [Unknown]
  - Poor peripheral circulation [Unknown]
  - Skin discolouration [Unknown]
  - Perforation [Unknown]
